FAERS Safety Report 17442206 (Version 2)
Quarter: 2020Q1

REPORT INFORMATION
  Report Type: Spontaneous
  Country: PL (occurrence: PL)
  Receive Date: 20200220
  Receipt Date: 20200309
  Transmission Date: 20200409
  Serious: Yes (Hospitalization, Other)
  Sender: FDA-Public Use
  Company Number: PL-AMERICAN REGENT INC-20181173

PATIENT
  Age: 37 Year
  Sex: Female

DRUGS (34)
  1. VENOFER [Suspect]
     Active Substance: IRON SUCROSE
     Dosage: UNK
     Route: 042
     Dates: end: 201503
  2. VENOFER [Suspect]
     Active Substance: IRON SUCROSE
     Dosage: UNK
     Route: 042
  3. EPOETIN BETA [Suspect]
     Active Substance: ERYTHROPOIETIN
     Indication: PRODUCT USED FOR UNKNOWN INDICATION
     Dosage: 2000 IU, 1/WEEK, AFTER EACH DIALYSIS
     Route: 058
  4. COLECALCIFEROL [Concomitant]
     Active Substance: CHOLECALCIFEROL
     Indication: PRODUCT USED FOR UNKNOWN INDICATION
     Dosage: UNKNOWN
     Route: 065
  5. RISEDRONIC ACID [Concomitant]
     Active Substance: RISEDRONIC ACID
     Indication: PRODUCT USED FOR UNKNOWN INDICATION
     Dosage: UNK
     Route: 065
  6. MALTOFER                           /00023548/ [Suspect]
     Active Substance: IRON POLYMALTOSE
     Indication: PRODUCT USED FOR UNKNOWN INDICATION
     Dosage: 100 MG, 1 IN 1 WK
     Route: 048
     Dates: start: 201408
  7. LEVOTHYROXINE SODIUM. [Suspect]
     Active Substance: LEVOTHYROXINE SODIUM
     Indication: HYPOTHYROIDISM
     Dosage: 25 MCG (25 MCG, 1 IN 1 D)
     Route: 065
     Dates: start: 201505
  8. HEPARIN [Suspect]
     Active Substance: HEPARIN SODIUM
     Indication: ANTICOAGULANT THERAPY
     Dosage: UNKNOWN
     Route: 065
  9. FOLIC ACID. [Suspect]
     Active Substance: FOLIC ACID
     Indication: PRODUCT USED FOR UNKNOWN INDICATION
     Dosage: 15 MG (15 MG, 1 IN 1 D)
     Route: 048
     Dates: start: 201503
  10. FERINJECT [Suspect]
     Active Substance: FERRIC CARBOXYMALTOSE
     Dosage: 100 MG
     Route: 042
     Dates: start: 201408
  11. FERINJECT [Suspect]
     Active Substance: FERRIC CARBOXYMALTOSE
     Dosage: UNK
     Route: 042
  12. SPIRAMYCIN [Suspect]
     Active Substance: SPIRAMYCIN
     Indication: TOXOPLASMOSIS
     Dosage: AFTER EACH DIALYSIS
     Route: 065
     Dates: start: 201505
  13. METHYLDOPA. [Suspect]
     Active Substance: METHYLDOPA
     Indication: HYPERTENSION
     Dosage: 3 DOSAGE FORMS (1 DOSAGE FORMS, 3 IN 1 D)
     Route: 065
     Dates: start: 201503
  14. METHYLDOPA. [Suspect]
     Active Substance: METHYLDOPA
     Dosage: UNK
     Route: 065
     Dates: start: 201505
  15. ERYTHROPOIETIN [Suspect]
     Active Substance: ERYTHROPOIETIN
     Dosage: AFTER EACH DIALYSIS (2000 IU)
     Route: 065
  16. IRON DEXTRAN [Suspect]
     Active Substance: IRON DEXTRAN
     Indication: PRODUCT USED FOR UNKNOWN INDICATION
     Dosage: 14.2857 MG (100 MG, 1 IN 1 WK)
     Route: 042
  17. ASCORBIC ACID. [Concomitant]
     Active Substance: ASCORBIC ACID
     Indication: PRODUCT USED FOR UNKNOWN INDICATION
     Dosage: AFTER EACH DIALYSIS
     Route: 065
  18. FERINJECT [Suspect]
     Active Substance: FERRIC CARBOXYMALTOSE
     Indication: PRODUCT USED FOR UNKNOWN INDICATION
     Dosage: 50 MG
     Route: 042
  19. SIMVASTATIN. [Suspect]
     Active Substance: SIMVASTATIN
     Indication: HYPERCHOLESTEROLAEMIA
     Dosage: 20 MILLIGRAM
     Route: 065
  20. ALFACALCIDOL [Concomitant]
     Active Substance: ALFACALCIDOL
     Indication: HYPERPARATHYROIDISM SECONDARY
     Dosage: 0.25 MCG (0.25  MCG, 1 IN 1 D)
     Route: 065
  21. VENOFER [Suspect]
     Active Substance: IRON SUCROSE
     Dosage: 100 MG
     Route: 042
  22. EPOETIN BETA [Suspect]
     Active Substance: ERYTHROPOIETIN
     Dosage: 4000 IU, 1/WEEK, AFTER EACH DIALYSIS
     Route: 058
     Dates: end: 201508
  23. ASCORBIC ACID W/FERROUS SULFATE [Suspect]
     Active Substance: ASCORBIC ACID\FERROUS SULFATE
     Indication: PRODUCT USED FOR UNKNOWN INDICATION
     Dosage: 1 IN 1 D
     Route: 048
     Dates: end: 2015
  24. VENOFER [Suspect]
     Active Substance: IRON SUCROSE
     Indication: PRODUCT USED FOR UNKNOWN INDICATION
     Dosage: 100 MG
     Route: 042
     Dates: start: 201408
  25. MALTOFER                           /00023548/ [Suspect]
     Active Substance: IRON POLYMALTOSE
     Dosage: 100 MILLIGRAM
     Route: 048
     Dates: start: 201503
  26. ERYTHROPOIETIN [Suspect]
     Active Substance: ERYTHROPOIETIN
     Indication: PRODUCT USED FOR UNKNOWN INDICATION
     Dosage: 4000 IU, 1 IN 1 WK
     Route: 065
  27. EPOETIN BETA [Suspect]
     Active Substance: ERYTHROPOIETIN
     Dosage: UNK, 1/WEEK, AFTER EACH DIALYSIS
     Route: 058
  28. FERINJECT [Suspect]
     Active Substance: FERRIC CARBOXYMALTOSE
     Dosage: UNK
     Route: 042
     Dates: end: 201503
  29. SIMVASTATIN. [Suspect]
     Active Substance: SIMVASTATIN
     Dosage: UNK
  30. TORASEMIDE [Suspect]
     Active Substance: TORSEMIDE
     Indication: HYPERTENSION
     Dosage: 2.5 MG (2.5 MG, 1 IN 1 D)
     Route: 065
  31. EPOETIN BETA [Suspect]
     Active Substance: ERYTHROPOIETIN
     Dosage: 2000 IU, 1/WEEK, AFTER EACH DIALYSIS
     Route: 058
  32. ASCORBIC ACID W/CALCIUM GLUBIONATE [Suspect]
     Active Substance: ASCORBIC ACID\CALCIUM GLUBIONATE
     Indication: PRODUCT USED FOR UNKNOWN INDICATION
     Dosage: UNKNOWN
     Route: 065
     Dates: end: 2015
  33. CEFUROXIME. [Suspect]
     Active Substance: CEFUROXIME
     Indication: CYSTITIS
     Dosage: UNKNOWN
     Route: 065
     Dates: start: 201505
  34. ACETYLSALICYLIC ACID [Suspect]
     Active Substance: ASPIRIN
     Indication: PROPHYLAXIS
     Dosage: 75 MG (75 MG, 1 IN 1 D)
     Route: 048
     Dates: start: 201503

REACTIONS (13)
  - Haemoglobin decreased [Unknown]
  - Off label use [Unknown]
  - Premature delivery [Unknown]
  - Haematocrit decreased [Unknown]
  - Hypothyroidism [Unknown]
  - Oedema peripheral [Unknown]
  - Maternal exposure during pregnancy [Unknown]
  - Cystitis [Unknown]
  - Blood albumin decreased [Unknown]
  - Premature rupture of membranes [Unknown]
  - Live birth [Unknown]
  - Toxoplasmosis [Unknown]
  - Contraindicated product administered [Unknown]

NARRATIVE: CASE EVENT DATE: 2015
